FAERS Safety Report 26069113 (Version 1)
Quarter: 2025Q4

REPORT INFORMATION
  Report Type: Spontaneous
  Country: EU (occurrence: EU)
  Receive Date: 20251120
  Receipt Date: 20251120
  Transmission Date: 20260118
  Serious: Yes (Other)
  Sender: MYLAN
  Company Number: EU-MYLANLABS-2025M1097262

PATIENT
  Age: 35 Year
  Sex: Male

DRUGS (11)
  1. PACLITAXEL [Suspect]
     Active Substance: PACLITAXEL
     Indication: Kaposi^s sarcoma
     Dosage: UNK
  2. PACLITAXEL [Suspect]
     Active Substance: PACLITAXEL
     Indication: Castleman^s disease
  3. RITUXIMAB [Suspect]
     Active Substance: RITUXIMAB
     Indication: Kaposi^s sarcoma
     Dosage: UNK (RECEIVED AS SECOND LINE TREATMENT)
     Dates: start: 20240814, end: 20240917
  4. RITUXIMAB [Suspect]
     Active Substance: RITUXIMAB
     Indication: Castleman^s disease
     Dosage: UNK (RECEIVED AS THIRD LINE)
  5. VINBLASTINE [Suspect]
     Active Substance: VINBLASTINE
     Indication: Kaposi^s sarcoma
     Dosage: 4 MILLIGRAM, CYCLE (RECEIVED ON DAY 1 AT CYCLE ONE)
  6. VINBLASTINE [Suspect]
     Active Substance: VINBLASTINE
     Indication: Castleman^s disease
     Dosage: 6 MILLIGRAM, CYCLE (RECEIVED ON DAY 8 AT CYCLE ONE)
  7. VINBLASTINE [Suspect]
     Active Substance: VINBLASTINE
     Dosage: 10 MILLIGRAM, CYCLE (RECEIVED ON DAY 15)
  8. VINBLASTINE [Suspect]
     Active Substance: VINBLASTINE
     Dosage: UNK (EVERY 4 WEEKS)
  9. ETOPOSIDE [Concomitant]
     Active Substance: ETOPOSIDE
     Indication: Castleman^s disease
     Dosage: UNK UNK, CYCLE (RECEIVED 4 CYCLES)
     Dates: start: 20230218, end: 20230623
  10. DOXORUBICIN [Concomitant]
     Active Substance: DOXORUBICIN
     Indication: Kaposi^s sarcoma
     Dosage: UNK (RECEIVED AS FIRST LINE)
     Dates: start: 20230218, end: 20230623
  11. DOXORUBICIN [Concomitant]
     Active Substance: DOXORUBICIN
     Dosage: UNK (RECEIVED AS SECOND LINE)
     Dates: start: 20230807, end: 20231128

REACTIONS (2)
  - Drug ineffective [Unknown]
  - Disease progression [Unknown]
